FAERS Safety Report 5110158-7 (Version None)
Quarter: 2006Q3

REPORT INFORMATION
  Report Type: 
  Country: None (occurrence: None)
  Receive Date: 20060921
  Receipt Date: 20060410
  Transmission Date: 20061208
  Serious: Yes (Other)
  Sender: FDA-Public Use
  Company Number: PHEH2006US04786

PATIENT
  Age: 50 Year
  Sex: Female

DRUGS (16)
  1. AREDIA [Suspect]
     Indication: BREAST CANCER METASTATIC
     Dosage: 90 MG EVERY 3 WEEKS
     Route: 042
     Dates: start: 20030812, end: 20050916
  2. ARIMIDEX [Suspect]
  3. HERCEPTIN [Suspect]
     Dates: start: 20030804
  4. ZOLOFT [Concomitant]
     Indication: DEPRESSION
     Dosage: 50 MG, BID
     Dates: start: 20030709, end: 20040423
  5. DARVOCET [Concomitant]
     Indication: PAIN
     Dosage: UNK, PRN
     Dates: start: 20030709, end: 20030801
  6. AMBIEN [Concomitant]
  7. TYLENOL W/ CODEINE NO. 3 [Concomitant]
     Indication: PAIN
     Dosage: UNK, PRN
     Dates: start: 20030804, end: 20050901
  8. LORTAB [Concomitant]
     Indication: PAIN
     Dosage: 500 MG, PRN
     Dates: start: 20030709, end: 20050901
  9. ROXANOL [Concomitant]
  10. WELLBUTRIN XL [Concomitant]
     Dates: start: 20040423
  11. XANAX [Concomitant]
     Dosage: 0.5 MG, TID
  12. NEURONTIN [Concomitant]
     Dosage: 300 MG, TID
     Dates: start: 20041004
  13. OXYCONTIN [Concomitant]
     Dosage: 10 MG, BID
  14. OXYFAST [Concomitant]
     Dates: start: 20050902
  15. TAXOL [Concomitant]
  16. XELODA [Concomitant]

REACTIONS (8)
  - DENTAL CARIES [None]
  - DENTAL PULP DISORDER [None]
  - DENTAL TREATMENT [None]
  - OSTEOMYELITIS [None]
  - OSTEONECROSIS [None]
  - PAIN IN JAW [None]
  - SEQUESTRECTOMY [None]
  - TOOTH EXTRACTION [None]
